FAERS Safety Report 10912242 (Version 1)
Quarter: 2015Q1

REPORT INFORMATION
  Report Type: Spontaneous
  Country: FR (occurrence: None)
  Receive Date: 20150309
  Receipt Date: 20150309
  Transmission Date: 20150721
  Serious: Yes (Other)
  Sender: FDA-Public Use
  Company Number: 2015SA014436

PATIENT
  Age: 77 Year
  Sex: Male

DRUGS (11)
  1. LANSOPRAZOLE. [Concomitant]
     Active Substance: LANSOPRAZOLE
  2. CRESTOR [Concomitant]
     Active Substance: ROSUVASTATIN CALCIUM
  3. KARDEGIC [Concomitant]
     Active Substance: ASPIRIN LYSINE
  4. VALSARTAN. [Concomitant]
     Active Substance: VALSARTAN
  5. DAFALGAN [Concomitant]
     Active Substance: ACETAMINOPHEN
  6. PERMIXON [Concomitant]
     Active Substance: SAW PALMETTO
  7. CARDENSIEL [Concomitant]
     Active Substance: BISOPROLOL FUMARATE
  8. LANTUS SOLOSTAR [Suspect]
     Active Substance: INSULIN GLARGINE
     Dates: start: 20100604
  9. SOLOSTAR [Concomitant]
     Active Substance: DEVICE
  10. FLIXONASE [Concomitant]
     Active Substance: FLUTICASONE PROPIONATE
  11. ALLOPURINOL. [Concomitant]
     Active Substance: ALLOPURINOL

REACTIONS (4)
  - Haematuria [None]
  - Abnormal faeces [None]
  - Product odour abnormal [None]
  - Haematochezia [None]

NARRATIVE: CASE EVENT DATE: 201501
